FAERS Safety Report 8761553 (Version 1)
Quarter: 2012Q4

REPORT INFORMATION
  Report Type: 
  Country: US (occurrence: US)
  Receive Date: 20120904
  Receipt Date: 20120904
  Transmission Date: 20130627
  Serious: Yes (Hospitalization)
  Sender: FDA-Public Use
  Company Number: US-BAXTER-2012BAX015276

PATIENT
  Age: 65 None
  Sex: Female
  Weight: 72.73 kg

DRUGS (23)
  1. GAMMAGARD LIQUID [Suspect]
     Indication: COMMON VARIABLE IMMUNODEFICIENCY
     Route: 042
     Dates: end: 2002
  2. GAMMAGARD LIQUID [Suspect]
     Route: 042
     Dates: start: 2002, end: 201204
  3. FLEXERIL [Concomitant]
     Indication: DRUG USE FOR UNKNOWN INDICATION
  4. HYDROXYCHLOROQUINE [Concomitant]
     Indication: DRUG USE FOR UNKNOWN INDICATION
  5. DOXEPIN [Concomitant]
     Indication: DRUG USE FOR UNKNOWN INDICATION
  6. LEVOTHYROXINE [Concomitant]
     Indication: DRUG USE FOR UNKNOWN INDICATION
  7. ENALAPRIL [Concomitant]
     Indication: DRUG USE FOR UNKNOWN INDICATION
  8. WARFARIN [Concomitant]
     Indication: DRUG USE FOR UNKNOWN INDICATION
  9. SIMVASTATIN [Concomitant]
     Indication: DRUG USE FOR UNKNOWN INDICATION
  10. QUININE SULFATE [Concomitant]
     Indication: DRUG USE FOR UNKNOWN INDICATION
  11. FLUCONAZOLE [Concomitant]
     Indication: DRUG USE FOR UNKNOWN INDICATION
  12. DICYCLOMINE [Concomitant]
     Indication: DRUG USE FOR UNKNOWN INDICATION
  13. TYLENOL [Concomitant]
     Indication: DRUG USE FOR UNKNOWN INDICATION
  14. MUCINEX [Concomitant]
     Indication: DRUG USE FOR UNKNOWN INDICATION
  15. XALATAN [Concomitant]
     Indication: DRUG USE FOR UNKNOWN INDICATION
     Dosage: 1 DROP EACH EYE
  16. MULTIVITAMIN [Concomitant]
     Indication: DRUG USE FOR UNKNOWN INDICATION
  17. VITAMIN C [Concomitant]
     Indication: DRUG USE FOR UNKNOWN INDICATION
  18. CITRACAL + D [Concomitant]
     Indication: DRUG USE FOR UNKNOWN INDICATION
  19. VITAMIN D3 [Concomitant]
     Indication: DRUG USE FOR UNKNOWN INDICATION
  20. VITAMIN A [Concomitant]
     Indication: DRUG USE FOR UNKNOWN INDICATION
  21. LASIX [Concomitant]
  22. LEVOFLOXACIN [Concomitant]
     Indication: DRUG USE FOR UNKNOWN INDICATION
     Dates: start: 20120821, end: 20120821
  23. PREDNISONE [Concomitant]
     Indication: DRUG USE FOR UNKNOWN INDICATION
     Dates: start: 20120821

REACTIONS (3)
  - Pneumonia viral [Recovered/Resolved]
  - Hypersensitivity [Recovered/Resolved]
  - Weight decreased [Recovered/Resolved]
